FAERS Safety Report 8383575-X (Version None)
Quarter: 2012Q2

REPORT INFORMATION
  Report Type: 
  Country: None (occurrence: None)
  Receive Date: 20120524
  Receipt Date: 20120516
  Transmission Date: 20120825
  Serious: Yes (Disabling)
  Sender: FDA-Public Use
  Company Number: CZ-ABBOTT-12P-217-0936185-00

PATIENT
  Sex: Female

DRUGS (1)
  1. CLARITHROMYCIN [Suspect]
     Indication: PRODUCT USED FOR UNKNOWN INDICATION
     Dosage: 1-0-0
     Dates: start: 20120401

REACTIONS (4)
  - DEAFNESS TRANSITORY [None]
  - SKIN BURNING SENSATION [None]
  - SKIN EXFOLIATION [None]
  - ERYTHEMA [None]
